FAERS Safety Report 18307345 (Version 1)
Quarter: 2020Q3

REPORT INFORMATION
  Report Type: Spontaneous
  Country: US (occurrence: US)
  Receive Date: 20200924
  Receipt Date: 20200924
  Transmission Date: 20201103
  Serious: No
  Sender: FDA-Public Use
  Company Number: None

PATIENT
  Sex: Female

DRUGS (12)
  1. ALBUTEROL. [Concomitant]
     Active Substance: ALBUTEROL
  2. LIPITOR [Concomitant]
     Active Substance: ATORVASTATIN CALCIUM
  3. CYANOCOBAL [Concomitant]
  4. DITRIPAN [Concomitant]
  5. ASPIRIN 81 [Concomitant]
     Active Substance: ASPIRIN
  6. LITHIUM. [Concomitant]
     Active Substance: LITHIUM
  7. VRAYLAR [Concomitant]
     Active Substance: CARIPRAZINE
  8. PRAZOSIN. [Concomitant]
     Active Substance: PRAZOSIN
  9. SINGULAIR [Concomitant]
     Active Substance: MONTELUKAST SODIUM
  10. TRAZODONE [Concomitant]
     Active Substance: TRAZODONE HYDROCHLORIDE
  11. TYSABRI [Concomitant]
     Active Substance: NATALIZUMAB
  12. DALFAMPRIDINE. [Suspect]
     Active Substance: DALFAMPRIDINE
     Indication: MULTIPLE SCLEROSIS
     Dosage: ?          OTHER FREQUENCY:EVERY 12 HRS;?
     Route: 048
     Dates: start: 20181019

REACTIONS (1)
  - Therapy interrupted [None]
